FAERS Safety Report 6377677-7 (Version None)
Quarter: 2009Q3

REPORT INFORMATION
  Report Type: 
  Country: None (occurrence: None)
  Receive Date: 20090925
  Receipt Date: 20090918
  Transmission Date: 20100115
  Serious: Yes (Other)
  Sender: FDA-Public Use
  Company Number: US-BAXTER-2009BH010860

PATIENT
  Age: 40 Year
  Sex: Female
  Weight: 56 kg

DRUGS (1)
  1. HEPARIN SODIUM INJECTION [Suspect]
     Indication: LYME DISEASE
     Route: 042
     Dates: start: 20080331, end: 20080413

REACTIONS (11)
  - ABASIA [None]
  - ABDOMINAL PAIN [None]
  - ASTHENIA [None]
  - DEHYDRATION [None]
  - DIARRHOEA [None]
  - HEART RATE INCREASED [None]
  - HYPOTENSION [None]
  - INCOHERENT [None]
  - NAUSEA [None]
  - PULSE ABSENT [None]
  - VOMITING [None]
